FAERS Safety Report 14772446 (Version 1)
Quarter: 2018Q2

REPORT INFORMATION
  Report Type: Report from Study
  Country: US (occurrence: US)
  Receive Date: 20180418
  Receipt Date: 20180418
  Transmission Date: 20180711
  Serious: Yes (Hospitalization)
  Sender: FDA-Public Use
  Company Number: US-ACADIA PHARMACEUTICALS INC.-ACA-2018-008458

PATIENT
  Age: 86 Year
  Sex: Female
  Weight: 91 kg

DRUGS (5)
  1. NUPLAZID [Suspect]
     Active Substance: PIMAVANSERIN TARTRATE
     Indication: PARKINSON^S DISEASE PSYCHOSIS
  2. CARBIDOPA/LEVODOPA [Concomitant]
     Active Substance: CARBIDOPA\LEVODOPA
     Indication: PRODUCT USED FOR UNKNOWN INDICATION
     Dosage: 25-100MG 2 TABS PO QAM / 1 TAB PO AT LUNCH TIME / 2 TABS PO QPM
  3. SINEMET [Concomitant]
     Active Substance: CARBIDOPA\LEVODOPA
     Indication: PRODUCT USED FOR UNKNOWN INDICATION
  4. NUPLAZID [Suspect]
     Active Substance: PIMAVANSERIN TARTRATE
     Indication: DELUSION
     Dosage: 34 MG, QD
     Route: 065
     Dates: start: 20180228, end: 20180319
  5. NUPLAZID [Suspect]
     Active Substance: PIMAVANSERIN TARTRATE
     Indication: HALLUCINATION
     Dosage: UNK
     Route: 065

REACTIONS (12)
  - Malaise [Unknown]
  - Blood glucose fluctuation [Unknown]
  - Fall [Unknown]
  - Heart rate decreased [Unknown]
  - Peripheral swelling [Unknown]
  - Dyspnoea [Unknown]
  - Treatment noncompliance [Unknown]
  - Condition aggravated [Unknown]
  - Balance disorder [Unknown]
  - Decreased appetite [Unknown]
  - Cardiac failure congestive [Unknown]
  - Feeling abnormal [Unknown]

NARRATIVE: CASE EVENT DATE: 201803
